FAERS Safety Report 7865193-2 (Version None)
Quarter: 2011Q4

REPORT INFORMATION
  Report Type: 
  Country: None (occurrence: None)
  Receive Date: 20111028
  Receipt Date: 20101028
  Transmission Date: 20120403
  Serious: No
  Sender: FDA-Public Use
  Company Number: US-GLAXOSMITHKLINE-A0889402A

PATIENT
  Age: 61 Year
  Sex: Female

DRUGS (3)
  1. TYLENOL-500 [Concomitant]
  2. CARVEDILOL [Concomitant]
  3. ADVAIR DISKUS 100/50 [Suspect]
     Indication: LUNG DISORDER
     Dosage: 1PUFF TWICE PER DAY
     Route: 055
     Dates: start: 20100901, end: 20101001

REACTIONS (5)
  - SWELLING FACE [None]
  - ADVERSE DRUG REACTION [None]
  - NERVOUSNESS [None]
  - RASH [None]
  - CHEST PAIN [None]
